FAERS Safety Report 9653398 (Version 1)
Quarter: 2013Q4

REPORT INFORMATION
  Report Type: Spontaneous
  Country: US (occurrence: None)
  Receive Date: 20131028
  Receipt Date: 20131028
  Transmission Date: 20140711
  Serious: Yes (Disabling)
  Sender: FDA-Public Use
  Company Number: None

PATIENT
  Age: 63 Year
  Sex: Female
  Weight: 93.44 kg

DRUGS (1)
  1. VICTOZA [Suspect]
     Indication: DIABETES MELLITUS MANAGEMENT
     Dosage: 1.8 ONCE DAILY
     Route: 059
     Dates: start: 20130912, end: 20131005

REACTIONS (1)
  - Pancreatitis [None]
